FAERS Safety Report 8987771 (Version 1)
Quarter: 2012Q4

REPORT INFORMATION
  Report Type: Report from Study
  Country: JP (occurrence: JP)
  Receive Date: 20121227
  Receipt Date: 20121227
  Transmission Date: 20130627
  Serious: Yes (Other)
  Sender: FDA-Public Use
  Company Number: JP-VERTEX PHARMACEUTICALS INC.-2012-026602

PATIENT
  Age: 64 Year
  Sex: Male

DRUGS (11)
  1. VX-950 (TELAPREVIR) [Suspect]
     Indication: CHRONIC HEPATITIS C
     Dosage: 1500 mg, qd
     Route: 048
     Dates: start: 20120405, end: 20120613
  2. REBETOL [Concomitant]
     Dosage: 600 mg, qd
     Route: 048
     Dates: start: 20120405, end: 20120920
  3. PEGINTERFERON ALFA-2B [Concomitant]
     Dosage: 80 ?g, qw
     Route: 058
     Dates: start: 20120405
  4. PEGINTERFERON ALFA-2B [Concomitant]
     Dosage: 1.5 ?g/kg, qw
     Route: 058
     Dates: end: 20120712
  5. PEGINTERFERON ALFA-2B [Concomitant]
     Dosage: 1.0 ?g/kg, qw
     Route: 058
     Dates: start: 20120719, end: 20120726
  6. PEGINTERFERON ALFA-2B [Concomitant]
     Dosage: 1.5 ?g/kg, UNK
     Route: 058
     Dates: start: 20120802, end: 20120913
  7. LOXONIN [Concomitant]
     Dosage: 60 mg, prn
     Route: 048
     Dates: start: 20120409
  8. LOXONIN [Concomitant]
     Dosage: 180 mg, qd
     Route: 048
  9. MUCOSTA [Concomitant]
     Dosage: 100 mg, prn
     Dates: start: 20120409
  10. MUCOSTA [Concomitant]
     Dosage: 300 mg, qd
     Route: 048
  11. RESTAMIN                           /00000401/ [Concomitant]
     Dosage: 10 g, prn
     Route: 061
     Dates: start: 20120426, end: 20120508

REACTIONS (1)
  - White blood cell count decreased [Recovered/Resolved]
